FAERS Safety Report 24096279 (Version 1)
Quarter: 2024Q3

REPORT INFORMATION
  Report Type: Spontaneous
  Country: US (occurrence: None)
  Receive Date: 20240715
  Receipt Date: 20240715
  Transmission Date: 20241017
  Serious: Yes (unspecified)
  Sender: Public
  Company Number: None

PATIENT
  Age: 44 Year
  Sex: Female
  Weight: 88.2 kg

DRUGS (1)
  1. AJOVY [Suspect]
     Active Substance: FREMANEZUMAB-VFRM
     Indication: Migraine
     Dates: start: 20240507, end: 20240708

REACTIONS (11)
  - Ocular hyperaemia [None]
  - Eye swelling [None]
  - Swelling face [None]
  - Muscular weakness [None]
  - Fatigue [None]
  - Hypotension [None]
  - Pruritus [None]
  - Injection site rash [None]
  - Muscle spasms [None]
  - Back pain [None]
  - Pain in extremity [None]

NARRATIVE: CASE EVENT DATE: 20240602
